FAERS Safety Report 7264911-4 (Version None)
Quarter: 2011Q1

REPORT INFORMATION
  Report Type: 
  Country: None (occurrence: None)
  Receive Date: 20110131
  Receipt Date: 20101123
  Transmission Date: 20110831
  Serious: Yes (Other)
  Sender: FDA-Public Use
  Company Number: US-BAYER-201035562NA

PATIENT
  Sex: Female
  Weight: 81.633 kg

DRUGS (14)
  1. TOPROL-XL [Concomitant]
     Indication: TACHYCARDIA
  2. ZOLOFT [Concomitant]
     Indication: TACHYCARDIA
  3. REGLAN [Concomitant]
  4. YASMIN [Suspect]
     Indication: CONTRACEPTION
     Dosage: UNK
     Route: 048
     Dates: start: 20030101, end: 20080101
  5. MAXALT [Concomitant]
  6. LORAZEPAM [Concomitant]
     Indication: TACHYCARDIA
  7. VITAMIN D [Concomitant]
  8. ATIVAN [Concomitant]
  9. MACROBID [Concomitant]
  10. HYDROCODONE BITARTRATE [Concomitant]
  11. MICRONOR [Concomitant]
     Dosage: UNK
     Dates: start: 20060706, end: 20070427
  12. YAZ [Suspect]
     Indication: CONTRACEPTION
     Dosage: UNK
     Route: 048
     Dates: start: 20030101, end: 20080101
  13. YASMIN [Suspect]
     Indication: PROPHYLAXIS
  14. YAZ [Suspect]
     Indication: PROPHYLAXIS

REACTIONS (2)
  - NEPHROLITHIASIS [None]
  - CHOLELITHIASIS [None]
